FAERS Safety Report 20933478 (Version 1)
Quarter: 2022Q2

REPORT INFORMATION
  Report Type: Spontaneous
  Country: US (occurrence: US)
  Receive Date: 20220608
  Receipt Date: 20220608
  Transmission Date: 20220721
  Serious: No
  Sender: FDA-Public Use
  Company Number: US-PFIZER INC-202200797834

PATIENT
  Age: 55 Year
  Sex: Female
  Weight: 95.25 kg

DRUGS (2)
  1. PAXLOVID [Suspect]
     Active Substance: NIRMATRELVIR\RITONAVIR
     Indication: COVID-19 treatment
     Dosage: 3 DF (4 NIRMATRELVIR TABLETS AND 2 RITONAVIR TABLETS PER BLISTER CARD)
     Dates: start: 20220602, end: 20220602
  2. CARBAMAZEPINE [Suspect]
     Active Substance: CARBAMAZEPINE
     Indication: Seizure
     Dosage: 300 MG, 2X/DAY
     Route: 048

REACTIONS (2)
  - Feeling abnormal [Recovering/Resolving]
  - Contraindicated product administered [Unknown]

NARRATIVE: CASE EVENT DATE: 20220602
